FAERS Safety Report 4381407-8 (Version None)
Quarter: 2004Q2

REPORT INFORMATION
  Report Type: 
  Country: None (occurrence: None)
  Receive Date: 20040617
  Receipt Date: 20040617
  Transmission Date: 20050107
  Serious: Yes (Other)
  Sender: FDA-Public Use
  Company Number: None

PATIENT
  Age: 15 Year
  Sex: Female
  Weight: 63.5036 kg

DRUGS (1)
  1. DEFEROXAMINE 2000MG ABBOTT [Suspect]
     Indication: SICKLE CELL ANAEMIA
     Dosage: 2000MG DAILY SUBCUTANEOUS
     Route: 058
     Dates: start: 20040525, end: 20040615

REACTIONS (3)
  - INFUSION SITE BURNING [None]
  - INFUSION SITE SWELLING [None]
  - PHARMACEUTICAL PRODUCT COMPLAINT [None]
